FAERS Safety Report 8802799 (Version 2)
Quarter: 2012Q4

REPORT INFORMATION
  Report Type: 
  Country: SG (occurrence: SG)
  Receive Date: 20120921
  Receipt Date: 20121003
  Transmission Date: 20130627
  Serious: Yes (Hospitalization)
  Sender: FDA-Public Use
  Company Number: SG-009507513-1209SGP008676

PATIENT
  Age: 40 Year
  Sex: Female

DRUGS (3)
  1. JANUVIA [Suspect]
     Indication: DIABETES MELLITUS
     Dosage: 100 mg, bid
  2. JANUVIA [Suspect]
     Dosage: 100 mg, OM
     Route: 048
  3. ENALAPRIL MALEATE [Concomitant]

REACTIONS (3)
  - Hypotension [Recovered/Resolved]
  - Dehydration [Recovered/Resolved]
  - Overdose [Unknown]
